FAERS Safety Report 9519629 (Version 2)
Quarter: 2013Q4

REPORT INFORMATION
  Report Type: Report from Study
  Country: AU (occurrence: AU)
  Receive Date: 20130912
  Receipt Date: 20131008
  Transmission Date: 20140711
  Serious: Yes (Hospitalization, Other)
  Sender: FDA-Public Use
  Company Number: PHHY2013AU095571

PATIENT
  Age: 53 Year
  Sex: Female

DRUGS (11)
  1. SIMULECT [Suspect]
     Indication: RENAL TRANSPLANT
     Dosage: UNK
  2. NEORAL [Suspect]
     Indication: RENAL TRANSPLANT
     Dosage: UNK
  3. TACROLIMUS [Suspect]
     Dosage: 5.5 MG, BID
  4. MYCOPHENOLATE MOFETIL [Concomitant]
     Dosage: 500 MG, BID
  5. MYCOPHENOLATE MOFETIL [Concomitant]
     Dosage: 250 MG, BID
  6. PREDNISOLONE [Concomitant]
     Dosage: UNK
  7. PREDNISOLONE [Concomitant]
     Dosage: 20 MG/DAY
  8. PREDNISOLONE [Concomitant]
     Dosage: 7.5 MG DAILY
  9. PREDNISOLONE [Concomitant]
     Dosage: 5 MG, UNK
  10. SIROLIMUS [Concomitant]
     Dosage: UNK
  11. ALEMTUZUMAB [Concomitant]
     Dosage: 30 MG

REACTIONS (13)
  - Acute psychosis [Recovered/Resolved]
  - Mental impairment [Recovered/Resolved]
  - Persecutory delusion [Recovered/Resolved]
  - Hallucination, auditory [Recovered/Resolved]
  - Paranoia [Recovered/Resolved]
  - Affective disorder [Recovered/Resolved]
  - Agitation [Recovered/Resolved]
  - Aggression [Recovered/Resolved]
  - Delusion of grandeur [Unknown]
  - Chronic allograft nephropathy [Recovered/Resolved]
  - Kidney transplant rejection [Recovered/Resolved]
  - Leukopenia [Unknown]
  - Drug ineffective [Unknown]
